FAERS Safety Report 18809542 (Version 2)
Quarter: 2021Q1

REPORT INFORMATION
  Report Type: Spontaneous
  Country: PH (occurrence: PH)
  Receive Date: 20210129
  Receipt Date: 20210211
  Transmission Date: 20210419
  Serious: Yes (Other)
  Sender: FDA-Public Use
  Company Number: PH-009507513-2101PHL010790

PATIENT
  Age: 48 Year
  Sex: Female

DRUGS (2)
  1. ESMERON [Suspect]
     Active Substance: ROCURONIUM BROMIDE
     Dosage: 0.9 MILLIGRAM/KILOGRAM, ONCE
  2. BRIDION [Suspect]
     Active Substance: SUGAMMADEX
     Indication: NEUROMUSCULAR BLOCKADE REVERSAL
     Dosage: 4 MG/KG PO, ONCE

REACTIONS (3)
  - Therapeutic product effect delayed [Unknown]
  - Product storage error [Unknown]
  - Hypothermia [Unknown]

NARRATIVE: CASE EVENT DATE: 20210118
